FAERS Safety Report 8594847-8 (Version None)
Quarter: 2012Q3

REPORT INFORMATION
  Report Type: 
  Country: None (occurrence: None)
  Receive Date: 20120815
  Receipt Date: 20120814
  Transmission Date: 20120928
  Serious: Yes (Other)
  Sender: FDA-Public Use
  Company Number: TR-BAYER-2012-081459

PATIENT
  Age: 35 Year
  Sex: Female
  Weight: 78.912 kg

DRUGS (3)
  1. GLUCOBAY [Suspect]
     Indication: INSULIN RESISTANCE
     Dosage: UNK
     Dates: start: 20090101
  2. METFORMIN HYDROCHLORIDE [Concomitant]
     Dosage: UNK
     Dates: start: 20090101
  3. LEVOTHYROXINE SODIUM [Concomitant]
     Dosage: UNK
     Dates: start: 20090101

REACTIONS (3)
  - DEPRESSION [None]
  - NERVOUS SYSTEM DISORDER [None]
  - HEADACHE [None]
